FAERS Safety Report 9520158 (Version 2)
Quarter: 2013Q4

REPORT INFORMATION
  Report Type: Spontaneous
  Country: BE (occurrence: BE)
  Receive Date: 20130912
  Receipt Date: 20131014
  Transmission Date: 20140711
  Serious: Yes (Life-Threatening, Other)
  Sender: FDA-Public Use
  Company Number: BE-ELI_LILLY_AND_COMPANY-BE201309001308

PATIENT
  Age: 60 Year
  Sex: Male
  Weight: 90 kg

DRUGS (3)
  1. EFIENT [Suspect]
     Indication: STENT PLACEMENT
     Dosage: 10 MG, QD
     Route: 048
     Dates: start: 20120731, end: 20130731
  2. EFIENT [Suspect]
     Indication: ACUTE CORONARY SYNDROME
  3. ASPIRINE [Concomitant]

REACTIONS (4)
  - Acute myocardial infarction [Unknown]
  - Thrombosis in device [Unknown]
  - Drug dose omission [Unknown]
  - Off label use [Unknown]
